FAERS Safety Report 8229873-1 (Version None)
Quarter: 2012Q1

REPORT INFORMATION
  Report Type: 
  Country: None (occurrence: None)
  Receive Date: 20120323
  Receipt Date: 20120314
  Transmission Date: 20120608
  Serious: Yes (Death, Hospitalization)
  Sender: FDA-Public Use
  Company Number: US-BIOGENIDEC-2011BI049143

PATIENT
  Age: 74 Year
  Sex: Female

DRUGS (19)
  1. OMEPRAZOLE [Concomitant]
     Indication: GASTROOESOPHAGEAL REFLUX DISEASE
  2. FUROSEMIDE [Concomitant]
     Indication: HYPERTENSION
  3. DIAZEPAM [Concomitant]
     Indication: ANXIETY
  4. FLEXERIL [Concomitant]
     Indication: PAIN
  5. HYDROCHLOROTHIAZIDE [Concomitant]
     Indication: HYPERTENSION
  6. CALCIUM CARBONATE [Concomitant]
     Indication: OSTEOPOROSIS
  7. VITAMIN D [Concomitant]
     Indication: OSTEOPOROSIS
  8. VITAMIN D [Concomitant]
     Indication: OSTEOPOROSIS
  9. TYSABRI [Suspect]
     Route: 042
     Dates: start: 20110209, end: 20111130
  10. ENABLEX [Concomitant]
     Indication: INCONTINENCE
  11. PROVIGIL [Concomitant]
     Indication: MULTIPLE SCLEROSIS
  12. AMPYRA [Concomitant]
     Indication: MULTIPLE SCLEROSIS
  13. LIPITOR [Concomitant]
     Indication: HYPERCHOLESTEROLAEMIA
  14. GABAPENTIN [Concomitant]
     Indication: PAIN
  15. MIRAPEX [Concomitant]
     Indication: MULTIPLE SCLEROSIS
  16. FOSAMAX [Concomitant]
     Indication: OSTEOPOROSIS
  17. TYSABRI [Suspect]
     Indication: MULTIPLE SCLEROSIS
     Route: 042
     Dates: start: 20071212, end: 20080408
  18. PROZAC [Concomitant]
     Indication: DEPRESSION
  19. HYDROCODONE BITARTRATE AND ACETAMINOPHEN [Concomitant]
     Indication: PAIN

REACTIONS (9)
  - RESTLESS LEGS SYNDROME [None]
  - RENAL FAILURE ACUTE [None]
  - PNEUMONIA ASPIRATION [None]
  - COMPARTMENT SYNDROME [None]
  - COLITIS [None]
  - ANXIETY [None]
  - SKIN CANDIDA [None]
  - RHABDOMYOLYSIS [None]
  - FALL [None]
